FAERS Safety Report 6692906-8 (Version None)
Quarter: 2010Q2

REPORT INFORMATION
  Report Type: 
  Country: None (occurrence: None)
  Receive Date: 20100422
  Receipt Date: 20100415
  Transmission Date: 20101027
  Serious: Yes (Hospitalization, Disabling)
  Sender: FDA-Public Use
  Company Number: DE-WYE-G05960810

PATIENT
  Sex: Male
  Weight: 89 kg

DRUGS (4)
  1. VENLAFAXINE HCL [Suspect]
     Indication: DEPRESSION
     Dosage: UP TO 150 MG PER DAY
     Route: 048
     Dates: start: 20091204, end: 20100107
  2. TARGIN [Concomitant]
     Indication: BACK PAIN
     Dosage: UP TO 30 MG PER DAY
     Route: 048
     Dates: start: 20090801, end: 20091201
  3. AMITRIPTYLINE [Concomitant]
     Indication: BACK PAIN
     Route: 048
     Dates: start: 20091001, end: 20100101
  4. KATADOLON [Suspect]
     Indication: BACK PAIN
     Route: 048
     Dates: start: 20090801, end: 20091201

REACTIONS (1)
  - LIVER INJURY [None]
